FAERS Safety Report 9036412 (Version 1)
Quarter: 2013Q1

REPORT INFORMATION
  Report Type: Spontaneous
  Country: GB (occurrence: None)
  Receive Date: 20130114
  Receipt Date: 20130114
  Transmission Date: 20140127
  Serious: Yes (Disabling)
  Sender: FDA-Public Use
  Company Number: GER/UKI/13/0027374

PATIENT
  Age: 52 Year
  Sex: Female

DRUGS (3)
  1. SERTRALINE (SERTRALINE) (SERTRALINE) [Suspect]
     Indication: DEPRESSION
     Route: 048
     Dates: start: 20120717, end: 20120907
  2. CLOZAPINE (CLOZAPINE) [Concomitant]
  3. METFORMIN (METFORMIN) [Concomitant]

REACTIONS (3)
  - Cellulitis [None]
  - Skin exfoliation [None]
  - Rash [None]
